FAERS Safety Report 18660149 (Version 1)
Quarter: 2020Q4

REPORT INFORMATION
  Report Type: Report from Study
  Country: IT (occurrence: IT)
  Receive Date: 20201224
  Receipt Date: 20201224
  Transmission Date: 20210114
  Serious: Yes (Hospitalization)
  Sender: FDA-Public Use
  Company Number: IT-ACCORD-206877

PATIENT
  Age: 68 Year
  Sex: Female
  Weight: 0 kg

DRUGS (5)
  1. METHOTREXATE. [Suspect]
     Active Substance: METHOTREXATE
     Indication: RHEUMATOID ARTHRITIS
     Dosage: STRENGTH: 2.5 MG
     Dates: start: 20070101, end: 20201005
  2. FOLINA [Concomitant]
  3. TACHIPIRINA [Concomitant]
     Active Substance: ACETAMINOPHEN
     Indication: ARTHRALGIA
     Dosage: STRENGTH: 1000 MG
  4. HUMIRA [Suspect]
     Active Substance: ADALIMUMAB
     Indication: RHEUMATOID ARTHRITIS
     Dosage: STRENGTH: 40 MG / 0.8 ML, SOLUTION FOR INJECTION FOR PEDIATRIC USE
     Dates: start: 20101201, end: 20201005
  5. DIBASE [Concomitant]
     Active Substance: CHOLECALCIFEROL

REACTIONS (2)
  - Coronavirus infection [Recovering/Resolving]
  - Pyrexia [Recovering/Resolving]

NARRATIVE: CASE EVENT DATE: 20201005
